FAERS Safety Report 9592561 (Version 1)
Quarter: 2013Q3

REPORT INFORMATION
  Report Type: Spontaneous
  Country: US (occurrence: None)
  Receive Date: 20130930
  Receipt Date: 20130930
  Transmission Date: 20140515
  Serious: Yes (Other)
  Sender: FDA-Public Use
  Company Number: 1000046245

PATIENT
  Age: 84 Year
  Sex: Male

DRUGS (2)
  1. LINZESS [Suspect]
     Dosage: 145 MCG (145 MCG, 1 IN 1)
     Route: 048
     Dates: start: 20130621, end: 20130621
  2. DOCUSATE SODIUM (DOCUSATE SODIUM) (DOCUSATE SODIUM) [Concomitant]

REACTIONS (1)
  - Diarrhoea [None]
